FAERS Safety Report 4524033-X (Version None)
Quarter: 2005Q1

REPORT INFORMATION
  Report Type: 
  Country: None (occurrence: None)
  Receive Date: 20041119
  Receipt Date: 20040818
  Transmission Date: 20050727
  Serious: No
  Sender: FDA-Public Use
  Company Number: PHEH2004US08955

PATIENT
  Age: 79 Year
  Sex: Female

DRUGS (6)
  1. ZELNORM [Suspect]
     Indication: IRRITABLE BOWEL SYNDROME
     Dosage: SEE IMAGE
     Route: 048
     Dates: start: 20040501, end: 20040601
  2. ZELNORM [Suspect]
     Indication: IRRITABLE BOWEL SYNDROME
     Dosage: SEE IMAGE
     Route: 048
     Dates: start: 20040813
  3. LOTREL [Concomitant]
  4. FOSAMAX [Concomitant]
  5. MULTIVITAMIN [Concomitant]
  6. ANITVERT ^PFIZER^ (MECLOZINE HYDROCHLORIDE) [Concomitant]

REACTIONS (3)
  - DIZZINESS [None]
  - DYSPNOEA [None]
  - SKIN ODOUR ABNORMAL [None]
